FAERS Safety Report 25395102 (Version 1)
Quarter: 2025Q2

REPORT INFORMATION
  Report Type: Spontaneous
  Country: US (occurrence: US)
  Receive Date: 20250604
  Receipt Date: 20250604
  Transmission Date: 20250716
  Serious: Yes (Hospitalization, Other)
  Sender: RANBAXY
  Company Number: US-SUN PHARMACEUTICAL INDUSTRIES INC-2025R1-508783

PATIENT
  Age: 33 Year
  Sex: Female

DRUGS (1)
  1. BUPRENORPHINE [Suspect]
     Active Substance: BUPRENORPHINE
     Indication: Drug use disorder
     Route: 065

REACTIONS (7)
  - Treatment noncompliance [Unknown]
  - Therapeutic response decreased [Unknown]
  - Pulmonary infarction [Unknown]
  - Cardiac valve vegetation [Unknown]
  - Tricuspid valve stenosis [Unknown]
  - Chest pain [Unknown]
  - Pulmonary embolism [Unknown]
